FAERS Safety Report 9570846 (Version 1)
Quarter: 2013Q3

REPORT INFORMATION
  Report Type: Spontaneous
  Country: US (occurrence: None)
  Receive Date: 20130926
  Receipt Date: 20130926
  Transmission Date: 20140515
  Serious: Yes (Hospitalization, Other)
  Sender: FDA-Public Use
  Company Number: None

PATIENT
  Age: 66 Year
  Sex: Female
  Weight: 85.73 kg

DRUGS (1)
  1. ATORVASTATIN [Suspect]
     Indication: LOW DENSITY LIPOPROTEIN ABNORMAL
     Dosage: 1 TABLET ONCE DAILY TAKEN BY MOUTH
     Dates: start: 20121212, end: 20130919

REACTIONS (7)
  - Musculoskeletal stiffness [None]
  - Inflammation [None]
  - Pain in extremity [None]
  - Pain in extremity [None]
  - Flank pain [None]
  - Gait disturbance [None]
  - Product substitution issue [None]
